FAERS Safety Report 20151945 (Version 1)
Quarter: 2021Q4

REPORT INFORMATION
  Report Type: Spontaneous
  Country: PL (occurrence: PL)
  Receive Date: 20211206
  Receipt Date: 20211206
  Transmission Date: 20220304
  Serious: Yes (Death, Other)
  Sender: FDA-Public Use
  Company Number: PL-PFIZER INC-202101635039

PATIENT
  Age: 47 Year
  Sex: Male

DRUGS (1)
  1. BESPONSA [Suspect]
     Active Substance: INOTUZUMAB OZOGAMICIN
     Indication: Acute lymphocytic leukaemia
     Dosage: 2 CYCLES

REACTIONS (4)
  - Death [Fatal]
  - Pneumonia [Unknown]
  - Neurological infection [Unknown]
  - Human herpesvirus 6 infection [Unknown]
